FAERS Safety Report 8964595 (Version 1)
Quarter: 2012Q4

REPORT INFORMATION
  Report Type: 
  Country: BE (occurrence: BE)
  Receive Date: 20121213
  Receipt Date: 20121213
  Transmission Date: 20130627
  Serious: Yes (Hospitalization)
  Sender: FDA-Public Use
  Company Number: BE-PFIZER INC-2012309981

PATIENT
  Age: 83 Year
  Sex: Male
  Weight: 77.6 kg

DRUGS (26)
  1. GENOTROPIN [Suspect]
     Dosage: 0.2 mg, 1x/day, 7 injections/week
     Route: 058
     Dates: start: 20010423
  2. LIPANTHYL ^THISSEN^ [Concomitant]
     Indication: HYPERLIPIDEMIA
     Dosage: UNK
     Dates: start: 19940215
  3. ZYLORIC ^FRESENIUS^ [Concomitant]
     Indication: HYPERURICEMIA
     Dosage: UNK
     Dates: start: 19940215
  4. ACENTERINE [Concomitant]
     Indication: COAGULATION DEFECTS, OTHER AND UNSPECIFIED
     Dosage: UNK
     Dates: start: 19940215
  5. TESTOSTERONE [Concomitant]
     Indication: LUTEINISING HORMONE DEFICIENCY
     Dosage: UNK
     Dates: start: 19950915
  6. TESTOSTERONE [Concomitant]
     Indication: FOLLICLE-STIMULATING HORMONE DEFICIENCY
  7. TESTOSTERONE [Concomitant]
     Indication: TESTICULAR HYPOGONADISM
  8. HYDROCORTISONE [Concomitant]
     Indication: ACTH DECREASED
     Dosage: UNK
     Dates: start: 19950915
  9. LEVOTHYROXINE [Concomitant]
     Indication: THYROID DISORDER
     Dosage: UNK
     Dates: start: 19950915
  10. LEVOTHYROXINE [Concomitant]
     Indication: PRIMARY HYPOTHYROIDISM
  11. COZAAR [Concomitant]
     Indication: ESSENTIAL HYPERTENSION
     Dosage: UNK
     Dates: start: 19981115
  12. DIMITONE [Concomitant]
     Indication: ESSENTIAL HYPERTENSION
     Dosage: UNK
     Dates: start: 19981115
  13. ALDACTAZINE [Concomitant]
     Indication: ESSENTIAL HYPERTENSION
     Dosage: UNK
     Dates: start: 19981115
  14. SPIRONOLACTONE [Concomitant]
     Indication: ESSENTIAL HYPERTENSION
     Dosage: UNK
     Dates: start: 19981115
  15. TRAMADOL HYDROCHLORIDE [Concomitant]
     Indication: ISCHIALGIA
     Dosage: UNK
     Dates: start: 19990925
  16. DAFALGAN [Concomitant]
     Indication: ISCHIALGIA
     Dosage: UNK
     Dates: start: 19990929
  17. CONTRADOL [Concomitant]
     Indication: ISCHIALGIA
     Dosage: UNK
     Dates: start: 19990929
  18. DEANXIT [Concomitant]
     Indication: SCIATICA
     Dosage: UNK
     Dates: start: 19991008
  19. METHYLPREDNISOLONE [Concomitant]
     Indication: ISCHIALGIA
     Dosage: UNK
     Dates: start: 19991011
  20. TEGRETOL [Concomitant]
     Indication: ISCHIALGIA
     Dosage: UNK
     Dates: start: 19991026
  21. OMIC [Concomitant]
     Indication: BENIGN PROSTATIC HYPERPLASIA
     Dosage: UNK
     Dates: start: 20000315
  22. ZOCOR ^MSD^ [Concomitant]
     Indication: HYPERCHOLESTEROLEMIA
     Dosage: UNK
     Dates: start: 20000415
  23. LENDORMIN [Concomitant]
     Indication: INSOMNIA
     Dosage: UNK
     Dates: start: 20000415
  24. CARVEDILOL [Concomitant]
     Indication: HYPERTENSION
     Dosage: UNK
     Dates: start: 20000415
  25. DHEA [Concomitant]
     Indication: DEHYDROEPIANDROSTERONE DECREASED
     Dosage: UNK
     Dates: start: 20030526
  26. DHEA [Concomitant]
     Indication: TIREDNESS

REACTIONS (1)
  - Prostatic disorder [Unknown]
